APPROVED DRUG PRODUCT: PRELONE
Active Ingredient: PREDNISOLONE
Strength: 5MG/5ML
Dosage Form/Route: SYRUP;ORAL
Application: A089654 | Product #001
Applicant: MURO PHARMACEUTICAL INC
Approved: Jan 17, 1989 | RLD: No | RS: No | Type: DISCN